FAERS Safety Report 25858349 (Version 1)
Quarter: 2025Q3

REPORT INFORMATION
  Report Type: Spontaneous
  Country: RU (occurrence: RU)
  Receive Date: 20250929
  Receipt Date: 20250929
  Transmission Date: 20251021
  Serious: Yes (Other)
  Sender: DAIICHI
  Company Number: RU-AstraZeneca-CH-00954486A

PATIENT
  Sex: Female

DRUGS (1)
  1. TRASTUZUMAB DERUXTECAN [Suspect]
     Active Substance: TRASTUZUMAB DERUXTECAN
     Indication: Modified radical mastectomy
     Dosage: 5 MILLILITRE PER KILOGRAM, ONCE EVERY 3 WK
     Route: 041

REACTIONS (1)
  - Hepatotoxicity [Unknown]
